FAERS Safety Report 11967297 (Version 2)
Quarter: 2016Q1

REPORT INFORMATION
  Report Type: Spontaneous
  Country: US (occurrence: US)
  Receive Date: 20160127
  Receipt Date: 20160224
  Transmission Date: 20160526
  Serious: Yes (Other)
  Sender: FDA-Public Use
  Company Number: US-KERYX BIOPHARMACEUTICALS, INC.-2016US001534

PATIENT
  Sex: Female

DRUGS (11)
  1. EPOGEN [Concomitant]
     Active Substance: ERYTHROPOIETIN
     Dosage: 7000 IU, QWK, MONTH 1
  2. AURYXIA [Suspect]
     Active Substance: TETRAFERRIC TRICITRATE DECAHYDRATE
     Dosage: 10 TAB, QD, MONTH 3
     Dates: end: 201512
  3. EPOGEN [Concomitant]
     Active Substance: ERYTHROPOIETIN
     Indication: PRODUCT USED FOR UNKNOWN INDICATION
     Dosage: 5000 IU, QWK, 3 MONTHS BEFORE AURYXIA
  4. EPOGEN [Concomitant]
     Active Substance: ERYTHROPOIETIN
     Dosage: 5000 IU, QWK, 2 MONTHS BEFORE AURYXIA
  5. VENOFER [Concomitant]
     Active Substance: IRON SUCROSE
     Dosage: 100 MG, QWK, 2 MONTHS BEFORE AURYXIA
     Route: 042
  6. VENOFER [Concomitant]
     Active Substance: IRON SUCROSE
     Dosage: 100 MG, QWK, START OF AURYXIA
     Route: 042
  7. VENOFER [Concomitant]
     Active Substance: IRON SUCROSE
     Dosage: 100 MG, QWK, MONTH 1
     Route: 042
  8. EPOGEN [Concomitant]
     Active Substance: ERYTHROPOIETIN
     Dosage: 7000 IU, QWK, START OF AURYXIA
  9. AURYXIA [Suspect]
     Active Substance: TETRAFERRIC TRICITRATE DECAHYDRATE
     Dosage: 8 TAB, QD, MONTH 2
  10. VENOFER [Concomitant]
     Active Substance: IRON SUCROSE
     Indication: PRODUCT USED FOR UNKNOWN INDICATION
     Dosage: 100 MG, QWK, 3 MONTHS BEFORE AURYXIA
     Route: 042
  11. AURYXIA [Suspect]
     Active Substance: TETRAFERRIC TRICITRATE DECAHYDRATE
     Indication: BLOOD PHOSPHORUS INCREASED
     Dosage: 8 TAB, QD, MONTH 1
     Dates: start: 201509

REACTIONS (1)
  - Renal transplant [Unknown]
